FAERS Safety Report 9442885 (Version 1)
Quarter: 2013Q3

REPORT INFORMATION
  Report Type: Spontaneous
  Country: US (occurrence: None)
  Receive Date: 20130805
  Receipt Date: 20130805
  Transmission Date: 20140515
  Serious: Yes (Other)
  Sender: FDA-Public Use
  Company Number: None

PATIENT
  Age: 80 Year
  Sex: Male
  Weight: 80 kg

DRUGS (3)
  1. JUXTAPID [Suspect]
     Indication: BLOOD CHOLESTEROL ABNORMAL
     Dosage: 1XDAILY
     Route: 048
     Dates: start: 20130613, end: 20130711
  2. JUXTAPID [Suspect]
     Indication: CORONARY ARTERY DISEASE
     Dosage: 1XDAILY
     Route: 048
     Dates: start: 20130613, end: 20130711
  3. JUXTAPID [Suspect]
     Dosage: 1XDAILY
     Route: 048
     Dates: start: 20130613, end: 20130711

REACTIONS (5)
  - Diarrhoea [None]
  - Muscle spasms [None]
  - Dehydration [None]
  - Loss of consciousness [None]
  - Convulsion [None]
